FAERS Safety Report 7541701-6 (Version None)
Quarter: 2011Q2

REPORT INFORMATION
  Report Type: 
  Country: None (occurrence: None)
  Receive Date: 20110524
  Receipt Date: 20110512
  Transmission Date: 20111010
  Serious: Yes (Other)
  Sender: FDA-Public Use
  Company Number: AECAN201100129

PATIENT
  Age: 42 Year
  Sex: Male

DRUGS (2)
  1. IGIVNEX [Suspect]
     Indication: PRODUCT USED FOR UNKNOWN INDICATION
     Dosage: IV
     Route: 042
     Dates: start: 20020404, end: 20020404
  2. GAMIMUNE [Suspect]
     Indication: PRODUCT USED FOR UNKNOWN INDICATION
     Dosage: IV
     Route: 042
     Dates: start: 20011117, end: 20020628

REACTIONS (3)
  - HIV TEST POSITIVE [None]
  - THROAT IRRITATION [None]
  - HEPATITIS C VIRUS TEST POSITIVE [None]
